FAERS Safety Report 23125072 (Version 1)
Quarter: 2023Q4

REPORT INFORMATION
  Report Type: Report from Study
  Country: US (occurrence: US)
  Receive Date: 20231030
  Receipt Date: 20231030
  Transmission Date: 20240109
  Serious: Yes (Other)
  Sender: FDA-Public Use
  Company Number: US-PFIZERUPJ-202200222836AA

PATIENT
  Sex: Female

DRUGS (1)
  1. LYRICA [Suspect]
     Active Substance: PREGABALIN
     Indication: Product used for unknown indication
     Dosage: 75 MILLIGRAM, QID (FOUR TIMES A DAY)
     Route: 048

REACTIONS (7)
  - Diabetes mellitus [Unknown]
  - Cognitive disorder [Unknown]
  - Feeling abnormal [Unknown]
  - Hypoacusis [Unknown]
  - Asthma [Unknown]
  - Dyspnoea [Unknown]
  - Off label use [Unknown]
